FAERS Safety Report 19891075 (Version 1)
Quarter: 2021Q3

REPORT INFORMATION
  Report Type: Spontaneous
  Country: HK (occurrence: HK)
  Receive Date: 20210928
  Receipt Date: 20210928
  Transmission Date: 20211014
  Serious: Yes (Other)
  Sender: FDA-Public Use
  Company Number: HK-PFIZER INC-202101212399

PATIENT
  Sex: Female

DRUGS (2)
  1. AVASTIN [Concomitant]
     Active Substance: BEVACIZUMAB
     Indication: NON-SMALL CELL LUNG CANCER
  2. VIZIMPRO [Suspect]
     Active Substance: DACOMITINIB
     Indication: NON-SMALL CELL LUNG CANCER
     Dosage: 30 MG

REACTIONS (3)
  - Rash [Unknown]
  - Carcinoembryonic antigen increased [Unknown]
  - Off label use [Unknown]
